FAERS Safety Report 6717102-7 (Version None)
Quarter: 2010Q2

REPORT INFORMATION
  Report Type: 
  Country: None (occurrence: None)
  Receive Date: 20100510
  Receipt Date: 20100507
  Transmission Date: 20101027
  Serious: Yes (Hospitalization)
  Sender: FDA-Public Use
  Company Number: FR-SANOFI-AVENTIS-2010SA001394

PATIENT
  Age: 78 Year
  Sex: Male

DRUGS (27)
  1. ZOLPIDEM [Suspect]
     Route: 048
     Dates: end: 20091113
  2. DOLIPRANE [Suspect]
     Route: 048
     Dates: end: 20091113
  3. AUGMENTIN '125' [Suspect]
     Route: 048
     Dates: start: 20090929, end: 20091016
  4. PRAVASTATIN SODIUM [Suspect]
     Route: 048
     Dates: start: 19970101, end: 20091113
  5. PRAVASTATIN SODIUM [Suspect]
  6. ESOMEPRAZOLE [Concomitant]
     Route: 048
     Dates: end: 20091113
  7. ESOMEPRAZOLE [Concomitant]
  8. PREVISCAN [Concomitant]
     Route: 048
     Dates: end: 20091113
  9. PREVISCAN [Concomitant]
  10. LASIX [Concomitant]
     Route: 048
     Dates: end: 20091113
  11. LASIX [Concomitant]
  12. ALDACTONE [Concomitant]
     Route: 048
     Dates: end: 20091113
  13. ALDACTONE [Concomitant]
  14. CARDENSIEL [Concomitant]
     Route: 048
     Dates: end: 20091113
  15. CARDENSIEL [Concomitant]
  16. VASTAREL ^BIOPHARMA^ [Concomitant]
     Route: 048
     Dates: end: 20091113
  17. VASTAREL ^BIOPHARMA^ [Concomitant]
  18. PERINDOPRIL ERBUMINE [Concomitant]
     Route: 048
     Dates: end: 20091113
  19. PERINDOPRIL ERBUMINE [Concomitant]
  20. VAXIGRIP [Concomitant]
     Dates: start: 20091003, end: 20091003
  21. NITROGLYCERIN [Concomitant]
     Dates: start: 19970101, end: 20091113
  22. NITROGLYCERIN [Concomitant]
  23. DISCOTRINE [Concomitant]
     Dates: start: 19970101, end: 20091113
  24. DISCOTRINE [Concomitant]
  25. CORTANCYL [Concomitant]
     Dates: start: 20090601, end: 20091113
  26. CORTANCYL [Concomitant]
  27. NOVOMIX [Concomitant]
     Dosage: DOSE:70 UNIT(S)
     Route: 058
     Dates: start: 20090601, end: 20091113

REACTIONS (5)
  - CHOLANGIOLITIS [None]
  - CHOLESTATIC LIVER INJURY [None]
  - HYPERBILIRUBINAEMIA [None]
  - JAUNDICE [None]
  - PRURITUS [None]
